FAERS Safety Report 11810024 (Version 2)
Quarter: 2016Q1

REPORT INFORMATION
  Report Type: Spontaneous
  Country: US (occurrence: US)
  Receive Date: 20151208
  Receipt Date: 20160104
  Transmission Date: 20160525
  Serious: Yes (Death, Other)
  Sender: FDA-Public Use
  Company Number: US-009507513-1512USA003153

PATIENT
  Age: 62 Year
  Sex: Male

DRUGS (5)
  1. KEYTRUDA [Suspect]
     Active Substance: PEMBROLIZUMAB
     Indication: METASTATIC MALIGNANT MELANOMA
     Dosage: 175 MG, Q3W
     Route: 042
     Dates: start: 201406, end: 201409
  2. KEYTRUDA [Suspect]
     Active Substance: PEMBROLIZUMAB
     Dosage: 175 MG, Q3W
     Route: 042
     Dates: start: 201410, end: 201412
  3. ZOMETA [Concomitant]
     Active Substance: ZOLEDRONIC ACID
     Dosage: UNK
  4. KEYTRUDA [Suspect]
     Active Substance: PEMBROLIZUMAB
     Dosage: 175 MG, ONCE (LAST INFUSION)
     Route: 042
     Dates: start: 20150114, end: 20150114
  5. PACLITAXEL. [Concomitant]
     Active Substance: PACLITAXEL
     Dosage: UNK

REACTIONS (6)
  - Metastases to central nervous system [Unknown]
  - Death [Fatal]
  - Metastases to liver [Unknown]
  - Metastases to spleen [Unknown]
  - Malaise [Unknown]
  - Central nervous system lesion [Unknown]

NARRATIVE: CASE EVENT DATE: 201409
